FAERS Safety Report 8433332-0 (Version None)
Quarter: 2012Q2

REPORT INFORMATION
  Report Type: 
  Country: None (occurrence: None)
  Receive Date: 20120613
  Receipt Date: 20120606
  Transmission Date: 20120825
  Serious: Yes (Other)
  Sender: FDA-Public Use
  Company Number: US-PFIZER INC-2012136162

PATIENT
  Sex: Female
  Weight: 69.841 kg

DRUGS (3)
  1. CELEBREX [Suspect]
     Dosage: 100 MG, 1X/DAY
     Route: 048
     Dates: start: 20120212, end: 20120217
  2. XARELTO [Suspect]
     Indication: THROMBOSIS PROPHYLAXIS
     Dosage: 10 MG, 1X/DAY
     Route: 048
     Dates: start: 20120213
  3. XARELTO [Suspect]
     Indication: KNEE ARTHROPLASTY

REACTIONS (1)
  - INCISION SITE HAEMORRHAGE [None]
